FAERS Safety Report 26050833 (Version 2)
Quarter: 2025Q4

REPORT INFORMATION
  Report Type: Spontaneous
  Country: US (occurrence: US)
  Receive Date: 20251116
  Receipt Date: 20251118
  Transmission Date: 20260118
  Serious: Yes (Other)
  Sender: JOHNSON AND JOHNSON
  Company Number: US-JNJFOC-20251145343

PATIENT
  Age: 59 Year
  Sex: Female

DRUGS (22)
  1. MACITENTAN\TADALAFIL [Suspect]
     Active Substance: MACITENTAN\TADALAFIL
     Indication: Product used for unknown indication
     Route: 048
  2. REMODULIN [Suspect]
     Active Substance: TREPROSTINIL
     Indication: Pulmonary hypertension
     Dates: start: 20231023
  3. TADALAFIL [Suspect]
     Active Substance: TADALAFIL
     Indication: Product used for unknown indication
  4. SILDENAFIL [Suspect]
     Active Substance: SILDENAFIL
     Indication: Product used for unknown indication
  5. SOTATERCEPT [Suspect]
     Active Substance: SOTATERCEPT
     Indication: Product used for unknown indication
  6. ALGELDRATE\SODIUM ALGINATE [Concomitant]
     Active Substance: ALGELDRATE\SODIUM ALGINATE
     Indication: Product used for unknown indication
  7. IBUPROFEN [Concomitant]
     Active Substance: IBUPROFEN
     Indication: Product used for unknown indication
  8. TYLENOL [Concomitant]
     Active Substance: ACETAMINOPHEN
     Indication: Product used for unknown indication
  9. SODIUM CHLORIDE [Concomitant]
     Active Substance: SODIUM CHLORIDE
     Indication: Product used for unknown indication
  10. OPSUMIT [Concomitant]
     Active Substance: MACITENTAN
     Indication: Product used for unknown indication
  11. LASIX [Concomitant]
     Active Substance: FUROSEMIDE
     Indication: Product used for unknown indication
  12. VITAMIN C [Concomitant]
     Active Substance: ASCORBIC ACID
     Indication: Product used for unknown indication
  13. ARNICA [AESCULUS HIPPOCASTANUM;ARNICA MONTANA FLOWER;GINKGO BILOBA LEA [Concomitant]
     Indication: Product used for unknown indication
  14. VITAMIN D3 [Concomitant]
     Active Substance: CHOLECALCIFEROL
     Indication: Product used for unknown indication
  15. POTASSIUM CHLORIDE [Concomitant]
     Active Substance: POTASSIUM CHLORIDE
     Indication: Product used for unknown indication
  16. CHLORTAB [CHLORPHENAMINE MALEATE] [Concomitant]
     Indication: Product used for unknown indication
  17. ALOE VERA;LIDOCAINE [Concomitant]
     Indication: Product used for unknown indication
  18. DIAZEPAM [Concomitant]
     Active Substance: DIAZEPAM
     Indication: Product used for unknown indication
  19. SPIRONOLACTONE [Concomitant]
     Active Substance: SPIRONOLACTONE
     Indication: Product used for unknown indication
  20. OXYGEN [Concomitant]
     Active Substance: OXYGEN
     Indication: Product used for unknown indication
  21. LORATADINE [Concomitant]
     Active Substance: LORATADINE
     Indication: Product used for unknown indication
  22. ELDERBERRY [RUBUS IDAEUS LEAF;SAMBUCUS NIGRA FLOWER;SAMBUCUS NIGRA FRU [Concomitant]
     Indication: Product used for unknown indication

REACTIONS (39)
  - Loss of consciousness [Unknown]
  - Hypoxia [Unknown]
  - Hemiplegia [Unknown]
  - Cough [Unknown]
  - Fatigue [Unknown]
  - Asthenia [Unknown]
  - Ocular discomfort [Unknown]
  - Ligament sprain [Unknown]
  - Exposure to contaminated air [Unknown]
  - Sleep deficit [Not Recovered/Not Resolved]
  - Anxiety [Unknown]
  - Paraesthesia [Unknown]
  - Dyspnoea [Unknown]
  - Vision blurred [Unknown]
  - Dizziness [Unknown]
  - Dysstasia [Unknown]
  - Respiratory rate increased [Unknown]
  - Dehydration [Unknown]
  - Diarrhoea [Recovered/Resolved]
  - Tremor [Unknown]
  - Feeling abnormal [Not Recovered/Not Resolved]
  - Drug hypersensitivity [Unknown]
  - Nausea [Unknown]
  - Dermatitis contact [Not Recovered/Not Resolved]
  - Suture rupture [Unknown]
  - Catheter site erythema [Unknown]
  - Skin erosion [Unknown]
  - Decreased appetite [Unknown]
  - Injection site infection [Not Recovered/Not Resolved]
  - Catheter site infection [Unknown]
  - Impaired healing [Unknown]
  - Perfume sensitivity [Unknown]
  - Neck pain [Unknown]
  - Product leakage [Unknown]
  - Incorrect dose administered [Unknown]
  - Device dislocation [Unknown]
  - Device maintenance issue [Unknown]
  - Device use error [Unknown]
  - Product dispensing error [Unknown]
